FAERS Safety Report 17216796 (Version 2)
Quarter: 2020Q1

REPORT INFORMATION
  Report Type: Spontaneous
  Country: ES (occurrence: ES)
  Receive Date: 20191230
  Receipt Date: 20200121
  Transmission Date: 20200409
  Serious: Yes (Other)
  Sender: FDA-Public Use
  Company Number: ES-ROCHE-2448490

PATIENT
  Age: 50 Year
  Sex: Female

DRUGS (7)
  1. HERCEPTIN [Suspect]
     Active Substance: TRASTUZUMAB
     Indication: INFLAMMATORY CARCINOMA OF THE BREAST
     Route: 065
  2. XELODA [Suspect]
     Active Substance: CAPECITABINE
     Indication: INFLAMMATORY CARCINOMA OF THE BREAST
     Route: 065
     Dates: start: 200508
  3. TAXOTERE [Concomitant]
     Active Substance: DOCETAXEL
     Dosage: 85MG / M2
     Route: 065
     Dates: start: 19981006
  4. VINORELBINE [Suspect]
     Active Substance: VINORELBINE TARTRATE
     Indication: INFLAMMATORY CARCINOMA OF THE BREAST
     Route: 065
  5. TAMOXIFEN [Concomitant]
     Active Substance: TAMOXIFEN
  6. PACLITAXEL. [Concomitant]
     Active Substance: PACLITAXEL
     Dosage: 90MG / M2
     Route: 065
     Dates: start: 19990702
  7. GEMCITABINE. [Suspect]
     Active Substance: GEMCITABINE
     Indication: INFLAMMATORY CARCINOMA OF THE BREAST
     Route: 065
     Dates: start: 201301, end: 201309

REACTIONS (5)
  - Discomfort [Unknown]
  - Palmar-plantar erythrodysaesthesia syndrome [Unknown]
  - Asthenia [Unknown]
  - Depression [Unknown]
  - Lymphoedema [Unknown]

NARRATIVE: CASE EVENT DATE: 201309
